FAERS Safety Report 16898423 (Version 1)
Quarter: 2019Q4

REPORT INFORMATION
  Report Type: Spontaneous
  Country: US (occurrence: US)
  Receive Date: 20191009
  Receipt Date: 20191009
  Transmission Date: 20200122
  Serious: Yes (Death)
  Sender: FDA-Public Use
  Company Number: US-BAYER-2019-177124

PATIENT
  Age: 66 Year
  Sex: Male

DRUGS (1)
  1. NEXAVAR [Suspect]
     Active Substance: SORAFENIB
     Indication: HEPATIC CANCER
     Dosage: UNK UNK, UNK
     Route: 048
     Dates: start: 20190920, end: 201909

REACTIONS (3)
  - Haemoptysis [Fatal]
  - Haemorrhage [Fatal]
  - Off label use [None]

NARRATIVE: CASE EVENT DATE: 20190920
